FAERS Safety Report 25727416 (Version 3)
Quarter: 2025Q4

REPORT INFORMATION
  Report Type: Spontaneous
  Country: IL (occurrence: IL)
  Receive Date: 20250826
  Receipt Date: 20251028
  Transmission Date: 20260117
  Serious: Yes (Death, Life-Threatening, Hospitalization)
  Sender: BOEHRINGER INGELHEIM
  Company Number: IL-BoehringerIngelheim-2025-BI-090950

PATIENT
  Age: 64 Year
  Sex: Female

DRUGS (3)
  1. OFEV [Suspect]
     Active Substance: NINTEDANIB
     Indication: Fibrosis
     Dates: start: 2022
  2. OFEV [Suspect]
     Active Substance: NINTEDANIB
     Dates: start: 2025
  3. PREDNISONE [Concomitant]
     Active Substance: PREDNISONE
     Indication: Product used for unknown indication

REACTIONS (4)
  - Sepsis [Fatal]
  - Mechanical ventilation [Not Recovered/Not Resolved]
  - Haemorrhage [Unknown]
  - Diarrhoea [Unknown]
